FAERS Safety Report 5064593-6 (Version None)
Quarter: 2006Q3

REPORT INFORMATION
  Report Type: 
  Country: None (occurrence: None)
  Receive Date: 20060728
  Receipt Date: 20060714
  Transmission Date: 20061208
  Serious: Yes (Other)
  Sender: FDA-Public Use
  Company Number: CH-MERCK-0607USA05278

PATIENT
  Age: 64 Year
  Sex: Male
  Weight: 70 kg

DRUGS (10)
  1. INVANZ [Suspect]
     Indication: PNEUMONIA BACTERIAL
     Route: 042
     Dates: start: 20060612, end: 20060613
  2. CORDARONE [Concomitant]
     Route: 065
     Dates: start: 20060613
  3. KLACID [Suspect]
     Indication: PNEUMONIA BACTERIAL
     Route: 065
     Dates: start: 20060612
  4. LIQUAEMIN INJ [Concomitant]
     Route: 065
  5. FENTANYL [Concomitant]
     Route: 065
  6. MAGNESIUM (UNSPECIFIED) [Concomitant]
     Route: 065
  7. PHYTONADIONE [Concomitant]
     Route: 065
  8. DIAMOX [Concomitant]
     Route: 065
     Dates: start: 20060613
  9. SUFENTA [Suspect]
     Route: 065
     Dates: start: 20060612
  10. PRIMPERAN TAB [Concomitant]
     Route: 065

REACTIONS (5)
  - ATRIAL FLUTTER [None]
  - BRAIN HYPOXIA [None]
  - EPILEPSY [None]
  - GRAND MAL CONVULSION [None]
  - MYOCLONUS [None]
